FAERS Safety Report 11628792 (Version 8)
Quarter: 2016Q3

REPORT INFORMATION
  Report Type: Spontaneous
  Country: US (occurrence: US)
  Receive Date: 20151014
  Receipt Date: 20160915
  Transmission Date: 20161109
  Serious: Yes (Hospitalization, Other)
  Sender: FDA-Public Use
  Company Number: US-PFIZER INC-2015338423

PATIENT
  Age: 72 Year
  Sex: Male
  Weight: 132 kg

DRUGS (1)
  1. LYRICA [Suspect]
     Active Substance: PREGABALIN
     Indication: NEUROPATHY PERIPHERAL
     Dosage: 100 MG, 3X/DAY
     Route: 048
     Dates: start: 2013

REACTIONS (13)
  - Skin cancer [Unknown]
  - Ear infection [Not Recovered/Not Resolved]
  - Hypoacusis [Unknown]
  - Fall [Unknown]
  - Pain in extremity [Unknown]
  - Feeling abnormal [Unknown]
  - Nerve injury [Unknown]
  - Headache [Unknown]
  - Spinal fracture [Unknown]
  - Sinusitis [Not Recovered/Not Resolved]
  - Body height decreased [Recovered/Resolved]
  - Hypersensitivity [Unknown]
  - Insomnia [Unknown]
